FAERS Safety Report 6310867-8 (Version None)
Quarter: 2009Q3

REPORT INFORMATION
  Report Type: 
  Country: None (occurrence: None)
  Receive Date: 20090812
  Receipt Date: 20090805
  Transmission Date: 20100115
  Serious: Yes (Hospitalization)
  Sender: FDA-Public Use
  Company Number: CHNY2009JP03029

PATIENT
  Age: 2 Month
  Sex: Male

DRUGS (2)
  1. CLEMASTINE FUMARATE [Suspect]
     Indication: NASOPHARYNGITIS
  2. CEFTERAM PIVOXIL (CEFTERAM PIVOXIL) [Concomitant]

REACTIONS (6)
  - ABDOMINAL DISTENSION [None]
  - GRAND MAL CONVULSION [None]
  - HYPOVENTILATION [None]
  - INCORRECT DOSE ADMINISTERED [None]
  - OVERDOSE [None]
  - PERIPHERAL CIRCULATORY FAILURE [None]
